FAERS Safety Report 8606280-0 (Version None)
Quarter: 2012Q3

REPORT INFORMATION
  Report Type: 
  Country: None (occurrence: None)
  Receive Date: 20120820
  Receipt Date: 20120815
  Transmission Date: 20120928
  Serious: Yes (Hospitalization)
  Sender: FDA-Public Use
  Company Number: CA-ROCHE-1102595

PATIENT
  Age: 62 Year
  Sex: Female

DRUGS (13)
  1. LAXATIVES (UNK INGREDIENTS) [Concomitant]
     Route: 065
  2. METOCLOPRAMIDE [Concomitant]
     Route: 065
  3. DESMOPRESSIN ACETATE (DDAVP) [Concomitant]
     Route: 065
  4. DEXAMETHASONE [Concomitant]
     Route: 065
  5. METOPROLOL TARTRATE [Concomitant]
     Route: 065
  6. VITAMIN D [Concomitant]
     Route: 065
  7. TYKERB [Suspect]
     Indication: PRODUCT USED FOR UNKNOWN INDICATION
     Route: 048
  8. HYDROMORPHONE HYDROCHLORIDE [Concomitant]
     Route: 065
  9. SPIRONOLACTONE [Concomitant]
     Route: 065
  10. ASPIRIN [Concomitant]
     Route: 065
  11. SLOW-K [Concomitant]
     Route: 065
  12. XELODA [Suspect]
     Indication: PRODUCT USED FOR UNKNOWN INDICATION
     Route: 065
  13. PANTOPRAZOLE [Concomitant]
     Route: 065

REACTIONS (9)
  - STOMATITIS [None]
  - BLOOD SODIUM DECREASED [None]
  - DEHYDRATION [None]
  - BLOOD POTASSIUM DECREASED [None]
  - DIARRHOEA [None]
  - ORAL PAIN [None]
  - SKIN ULCER [None]
  - ASTHENIA [None]
  - RENAL FAILURE [None]
